FAERS Safety Report 6380433-7 (Version None)
Quarter: 2009Q3

REPORT INFORMATION
  Report Type: 
  Country: None (occurrence: None)
  Receive Date: 20090929
  Receipt Date: 20090915
  Transmission Date: 20100115
  Serious: Yes (Other)
  Sender: FDA-Public Use
  Company Number: PHHY2009JP33371

PATIENT
  Age: 45 Year
  Sex: Male

DRUGS (3)
  1. DIOVAN [Suspect]
     Indication: HYPERTENSION
     Dosage: UNK
     Route: 048
  2. NORVASC [Suspect]
     Route: 048
  3. ACECOL [Concomitant]
     Dosage: UNK
     Route: 048

REACTIONS (2)
  - GINGIVAL HYPERTROPHY [None]
  - GINGIVECTOMY [None]
